FAERS Safety Report 9178565 (Version 1)
Quarter: 2012Q4

REPORT INFORMATION
  Report Type: 
  Country: US (occurrence: US)
  Receive Date: 20121029
  Receipt Date: 20121029
  Transmission Date: 20130627
  Serious: Yes (Other)
  Sender: FDA-Public Use
  Company Number: US-JNJFOC-20121013209

PATIENT

DRUGS (9)
  1. DOXORUBICIN [Suspect]
     Indication: OSTEOSARCOMA METASTATIC
     Dosage: x 2 days
     Route: 042
  2. CISPLATIN [Suspect]
     Indication: OSTEOSARCOMA METASTATIC
     Dosage: x 2 days
     Route: 065
  3. METHOTREXATE [Suspect]
     Indication: OSTEOSARCOMA METASTATIC
     Route: 065
  4. IFOSFAMIDE [Suspect]
     Indication: OSTEOSARCOMA METASTATIC
     Dosage: 2.8 g/m2 or 1.8 g/m2 per day x 5 days with MESNA
     Route: 065
  5. ETOPOSIDE [Suspect]
     Indication: OSTEOSARCOMA METASTATIC
     Dosage: for 5 days
     Route: 065
  6. DEXRAZOXANE [Suspect]
     Indication: OSTEOSARCOMA METASTATIC
     Dosage: 2 days
     Route: 065
  7. GRANULOCYTE COLONY STIMULATING FACTOR [Suspect]
     Indication: OSTEOSARCOMA METASTATIC
     Dosage: given with all courses except methotrexate
     Route: 065
  8. MESNA [Suspect]
     Indication: OSTEOSARCOMA METASTATIC
     Dosage: given along with ifsofamide 2.8 g/m2 or 1.8 g/m2
     Route: 065
  9. LEUCOVORIN [Suspect]
     Indication: OSTEOSARCOMA METASTATIC
     Dosage: x 10 doses starting 24 hours after methotrexate
     Route: 065

REACTIONS (2)
  - Myeloid leukaemia [Unknown]
  - Off label use [Unknown]
